FAERS Safety Report 8544082-4 (Version None)
Quarter: 2012Q3

REPORT INFORMATION
  Report Type: 
  Country: None (occurrence: None)
  Receive Date: 20120727
  Receipt Date: 20120723
  Transmission Date: 20120928
  Serious: Yes (Hospitalization)
  Sender: FDA-Public Use
  Company Number: US-MSD-1207USA010071

PATIENT

DRUGS (3)
  1. VELCADE [Suspect]
     Dosage: 1.3 MG/M2, UNK
     Route: 042
  2. DEXAMETHASONE [Concomitant]
     Dosage: 20 MG, UNK
  3. JANUVIA [Suspect]
     Dosage: UNK
     Route: 048

REACTIONS (5)
  - LIPASE INCREASED [None]
  - VOMITING [None]
  - PLATELET COUNT DECREASED [None]
  - AMYLASE INCREASED [None]
  - PYREXIA [None]
